FAERS Safety Report 6660583-8 (Version None)
Quarter: 2010Q1

REPORT INFORMATION
  Report Type: 
  Country: None (occurrence: None)
  Receive Date: 20100331
  Receipt Date: 20100319
  Transmission Date: 20100710
  Serious: Yes (Hospitalization)
  Sender: FDA-Public Use
  Company Number: JP-JNJFOC-20100308241

PATIENT
  Age: 68 Year
  Sex: Female

DRUGS (8)
  1. CRAVIT [Suspect]
     Indication: UPPER RESPIRATORY TRACT INFLAMMATION
     Route: 048
  2. LOXONIN [Suspect]
     Indication: UPPER RESPIRATORY TRACT INFLAMMATION
     Route: 048
  3. ZITHROMAC [Suspect]
     Indication: UPPER RESPIRATORY TRACT INFLAMMATION
     Route: 065
  4. BAKTAR [Suspect]
     Indication: INTERSTITIAL LUNG DISEASE
     Route: 065
  5. NEORAL [Concomitant]
     Indication: INTERSTITIAL LUNG DISEASE
     Route: 065
  6. CALONAL [Concomitant]
     Indication: INTERSTITIAL LUNG DISEASE
     Route: 065
  7. MUCODYNE [Concomitant]
     Route: 065
  8. MEDICON [Concomitant]
     Route: 065

REACTIONS (1)
  - DERMATITIS EXFOLIATIVE [None]
